FAERS Safety Report 8911735 (Version 1)
Quarter: 2012Q4

REPORT INFORMATION
  Report Type: 
  Country: US (occurrence: US)
  Receive Date: 20121116
  Receipt Date: 20121116
  Transmission Date: 20130627
  Serious: No
  Sender: FDA-Public Use
  Company Number: US-MYLANLABS-2012S1005775

PATIENT
  Age: 51 Year
  Sex: Female
  Weight: 110.22 kg

DRUGS (2)
  1. AMLODIPINE BESYLATE [Suspect]
     Indication: BLOOD PRESSURE INCREASED
  2. AMLODIPINE BESYLATE [Suspect]
     Indication: BLOOD PRESSURE INCREASED

REACTIONS (3)
  - Blood pressure fluctuation [Unknown]
  - Enzyme abnormality [Unknown]
  - Incorrect dose administered [Unknown]
